FAERS Safety Report 9843281 (Version 5)
Quarter: 2015Q3

REPORT INFORMATION
  Report Type: Spontaneous
  Country: US (occurrence: US)
  Receive Date: 20140124
  Receipt Date: 20150817
  Transmission Date: 20151125
  Serious: No
  Sender: FDA-Public Use
  Company Number: US-GILEAD-2014-0092974

PATIENT
  Age: 82 Year
  Sex: Female

DRUGS (1)
  1. LETAIRIS [Suspect]
     Active Substance: AMBRISENTAN
     Indication: COR PULMONALE CHRONIC
     Dosage: 5 MG, UNK
     Route: 048
     Dates: start: 20140113, end: 20140211

REACTIONS (8)
  - Contusion [Unknown]
  - Thinking abnormal [Unknown]
  - Hypertension [Unknown]
  - Confusional state [Recovered/Resolved]
  - Nausea [Unknown]
  - Somnolence [Unknown]
  - Nasopharyngitis [Unknown]
  - Aphonia [Unknown]
